FAERS Safety Report 10573405 (Version 2)
Quarter: 2015Q2

REPORT INFORMATION
  Report Type: Spontaneous
  Country: US (occurrence: US)
  Receive Date: 20141110
  Receipt Date: 20150507
  Transmission Date: 20150821
  Serious: Yes (Hospitalization, Other)
  Sender: FDA-Public Use
  Company Number: US-BAYER-2014-165538

PATIENT
  Age: 29 Year
  Sex: Female
  Weight: 63.49 kg

DRUGS (3)
  1. ALBUTEROL. [Concomitant]
     Active Substance: ALBUTEROL
     Dosage: UNK
     Dates: start: 2003
  2. CLARITIN [Concomitant]
     Active Substance: LORATADINE
     Dosage: UNK
     Dates: start: 2011
  3. MIRENA [Suspect]
     Active Substance: LEVONORGESTREL
     Indication: CONTRACEPTION
     Dosage: 20 MCG/24HR, CONT
     Route: 015
     Dates: start: 200902, end: 20121113

REACTIONS (9)
  - Pain [None]
  - Embedded device [None]
  - Pelvic inflammatory disease [None]
  - Device issue [None]
  - Procedural pain [Not Recovered/Not Resolved]
  - Pregnancy with contraceptive device [None]
  - Abdominal pain [None]
  - Injury [None]
  - Drug ineffective [None]

NARRATIVE: CASE EVENT DATE: 201208
